FAERS Safety Report 8850838 (Version 1)
Quarter: 2012Q4

REPORT INFORMATION
  Report Type: 
  Country: KR (occurrence: KR)
  Receive Date: 20121019
  Receipt Date: 20121019
  Transmission Date: 20130627
  Serious: Yes (Hospitalization)
  Sender: FDA-Public Use
  Company Number: KR-SANOFI-AVENTIS-2012SA075246

PATIENT
  Age: 40 Year
  Sex: Male

DRUGS (4)
  1. DANAZOL [Suspect]
     Indication: HEMOLYSIS
     Route: 065
  2. CORTICOSTEROID NOS [Suspect]
     Indication: HEMOLYSIS
     Route: 065
  3. RED BLOOD CELLS [Concomitant]
     Indication: HEMOLYSIS
  4. WARFARIN [Concomitant]

REACTIONS (12)
  - Disseminated tuberculosis [Recovering/Resolving]
  - Pyrexia [Recovering/Resolving]
  - Asthenia [Recovering/Resolving]
  - Jaundice [Recovering/Resolving]
  - Platelet count decreased [Recovering/Resolving]
  - Blood bilirubin increased [Recovering/Resolving]
  - Blood lactate dehydrogenase increased [Recovering/Resolving]
  - Dyspnoea [Recovering/Resolving]
  - Nausea [Recovering/Resolving]
  - Vomiting [Recovering/Resolving]
  - Haemoglobin decreased [Recovering/Resolving]
  - Breath sounds abnormal [Recovering/Resolving]
